FAERS Safety Report 20554578 (Version 2)
Quarter: 2022Q1

REPORT INFORMATION
  Report Type: Report from Study
  Country: CA (occurrence: CA)
  Receive Date: 20220304
  Receipt Date: 20220310
  Transmission Date: 20220423
  Serious: Yes (Other)
  Sender: FDA-Public Use
  Company Number: CA-CHIESI-2022CHF00940

PATIENT
  Sex: Female
  Weight: 77 kg

DRUGS (1)
  1. DEFERIPRONE [Suspect]
     Active Substance: DEFERIPRONE
     Indication: Sickle cell disease
     Dosage: 1500 MILLIGRAM
     Route: 048
     Dates: start: 20210726

REACTIONS (2)
  - Renal failure [Unknown]
  - Off label use [Unknown]
